FAERS Safety Report 7246370-0 (Version None)
Quarter: 2011Q1

REPORT INFORMATION
  Report Type: 
  Country: None (occurrence: None)
  Receive Date: 20110126
  Receipt Date: 20110120
  Transmission Date: 20110831
  Serious: Yes (Other)
  Sender: FDA-Public Use
  Company Number: US-PFIZER INC-2011014923

PATIENT
  Sex: Female

DRUGS (3)
  1. COMBIGAN [Concomitant]
     Dosage: UNK
  2. XALATAN [Suspect]
     Dosage: UNK
  3. ALPHAGAN [Concomitant]
     Dosage: UNK

REACTIONS (3)
  - EYE PRURITUS [None]
  - DRY EYE [None]
  - EYE DISORDER [None]
